FAERS Safety Report 7411682-4 (Version None)
Quarter: 2011Q2

REPORT INFORMATION
  Report Type: 
  Country: None (occurrence: None)
  Receive Date: 20110413
  Receipt Date: 20110105
  Transmission Date: 20111010
  Serious: Yes (Other)
  Sender: FDA-Public Use
  Company Number: US-BRISTOL-MYERS SQUIBB COMPANY-15367956

PATIENT
  Age: 77 Year
  Sex: Female

DRUGS (7)
  1. FAMOTIDINE [Concomitant]
     Dosage: 0.5 HOURS
     Route: 042
  2. BENADRYL [Concomitant]
     Dosage: DURATION:0.5HR
     Route: 042
     Dates: start: 20101019
  3. VERAPAMIL [Concomitant]
     Dosage: 1 DF = 180 UNITS NOS
  4. CLONIDINE [Concomitant]
  5. ALOXI [Concomitant]
     Route: 042
  6. DECADRON [Concomitant]
     Dosage: DURATION:0.25 HOURS
     Route: 042
  7. ERBITUX [Suspect]
     Dosage: ORDERED DOSE:600 MG STARTED AT 25ML/HOUR INTERRUPTED ON 19OCT2010
     Route: 042
     Dates: start: 20101019

REACTIONS (5)
  - FEELING HOT [None]
  - OROPHARYNGEAL BLISTERING [None]
  - URTICARIA [None]
  - VOMITING [None]
  - DYSPNOEA [None]
